FAERS Safety Report 22595611 (Version 1)
Quarter: 2023Q2

REPORT INFORMATION
  Report Type: Spontaneous
  Country: US (occurrence: US)
  Receive Date: 20230613
  Receipt Date: 20230613
  Transmission Date: 20230722
  Serious: No
  Sender: FDA-Public Use
  Company Number: US-RIGEL PHARMACEUTICALS, INC.-2022FOS000649

PATIENT
  Age: 85 Year
  Sex: Female

DRUGS (2)
  1. TAVALISSE [Suspect]
     Active Substance: FOSTAMATINIB
     Indication: Chronic myelomonocytic leukaemia
     Dosage: 100 MG, BID
     Route: 048
     Dates: start: 20220819
  2. TAVALISSE [Suspect]
     Active Substance: FOSTAMATINIB
     Indication: Platelet count decreased

REACTIONS (2)
  - Haemoglobin decreased [Unknown]
  - Off label use [Unknown]

NARRATIVE: CASE EVENT DATE: 20220801
